FAERS Safety Report 4806162-6 (Version None)
Quarter: 2005Q4

REPORT INFORMATION
  Report Type: 
  Country: None (occurrence: None)
  Receive Date: 20051021
  Receipt Date: 20051012
  Transmission Date: 20060501
  Serious: Yes (Life-Threatening, Hospitalization, Disabling)
  Sender: FDA-Public Use
  Company Number: JP-BRISTOL-MYERS SQUIBB COMPANY-13144399

PATIENT
  Age: 58 Year
  Sex: Female

DRUGS (1)
  1. TAXOL [Suspect]
     Indication: BREAST CANCER
     Dosage: CYCLE 1:  31-AUG-2005  CYCLE 2:  14-SEP-2005  CYCLE 3:  28-SEP-2005
     Route: 041
     Dates: start: 20050928, end: 20050928

REACTIONS (8)
  - ANAEMIA [None]
  - ANOREXIA [None]
  - DIARRHOEA [None]
  - DIZZINESS [None]
  - FATIGUE [None]
  - HEPATIC FUNCTION ABNORMAL [None]
  - PLATELET COUNT DECREASED [None]
  - VOMITING [None]
